FAERS Safety Report 8605693-0 (Version None)
Quarter: 2012Q3

REPORT INFORMATION
  Report Type: 
  Country: None (occurrence: None)
  Receive Date: 20120807
  Receipt Date: 20120727
  Transmission Date: 20120928
  Serious: Yes (Hospitalization)
  Sender: FDA-Public Use
  Company Number: ABR_00584_2012

PATIENT
  Sex: Female
  Weight: 74 kg

DRUGS (4)
  1. METOPROLOL TARTRATE [Concomitant]
  2. ERYTHROCIN [Suspect]
     Indication: CYSTITIS
     Dosage: (500 MG TID ORAL)
     Route: 048
     Dates: start: 20120707, end: 20120708
  3. AMLODIPINE [Concomitant]
  4. ZOLPIDEM [Concomitant]

REACTIONS (1)
  - ANGIOEDEMA [None]
